FAERS Safety Report 18766631 (Version 2)
Quarter: 2021Q3

REPORT INFORMATION
  Report Type: Other
  Country: CA (occurrence: CA)
  Receive Date: 20210121
  Receipt Date: 20210708
  Transmission Date: 20211014
  Serious: Yes (Other)
  Sender: FDA-Public Use
  Company Number: CA-CELLTRION INC.-2021CA000343

PATIENT

DRUGS (8)
  1. ALLOPURINOL. [Concomitant]
     Active Substance: ALLOPURINOL
  2. VIT D [Concomitant]
     Active Substance: VITAMIN D NOS
  3. RITUXIMAB (UNKNOWN) [Suspect]
     Active Substance: RITUXIMAB
     Indication: HIV INFECTION
     Dosage: UNK
     Route: 041
  4. RITUXIMAB (UNKNOWN) [Suspect]
     Active Substance: RITUXIMAB
     Indication: CASTLEMAN^S DISEASE
  5. ABACAVIR SULFATE;DOLUTEGRAVIR SODIUM;LAMIVUDINE [Concomitant]
     Active Substance: ABACAVIR SULFATE\DOLUTEGRAVIR SODIUM\LAMIVUDINE
  6. IBUPROFEN. [Concomitant]
     Active Substance: IBUPROFEN
     Dosage: UNK, AS REQUIRED
     Route: 065
  7. COMPLERA [Concomitant]
     Active Substance: EMTRICITABINE\RILPIVIRINE HYDROCHLORIDE\TENOFOVIR DISOPROXIL FUMARATE
  8. FOLIC ACID. [Concomitant]
     Active Substance: FOLIC ACID

REACTIONS (9)
  - Pleural effusion [Not Recovered/Not Resolved]
  - Platelet count decreased [Not Recovered/Not Resolved]
  - Skin oedema [Not Recovered/Not Resolved]
  - Lung disorder [Not Recovered/Not Resolved]
  - Neutrophil count decreased [Not Recovered/Not Resolved]
  - Off label use [Unknown]
  - Haemoglobin decreased [Not Recovered/Not Resolved]
  - Splenomegaly [Not Recovered/Not Resolved]
  - Neutropenia [Not Recovered/Not Resolved]
